FAERS Safety Report 9048605 (Version 1)
Quarter: 2013Q1

REPORT INFORMATION
  Report Type: Spontaneous
  Country: US (occurrence: None)
  Receive Date: 20130130
  Receipt Date: 20130130
  Transmission Date: 20140127
  Serious: Yes (Hospitalization)
  Sender: FDA-Public Use
  Company Number: None

PATIENT
  Age: 83 Year
  Sex: Female
  Weight: 68.18 kg

DRUGS (7)
  1. GOODYS [Suspect]
     Indication: ARTHRITIS
     Dosage: RECENT
     Route: 048
  2. HCTZ [Concomitant]
  3. AMLODIPINE [Concomitant]
  4. SIMVASTATIN [Concomitant]
  5. PATANOL [Concomitant]
  6. LORATADINE [Concomitant]
  7. ONGIYZA [Concomitant]

REACTIONS (2)
  - Upper gastrointestinal haemorrhage [None]
  - Haemorrhagic anaemia [None]
